FAERS Safety Report 14860193 (Version 1)
Quarter: 2018Q2

REPORT INFORMATION
  Report Type: Spontaneous
  Country: CA (occurrence: CA)
  Receive Date: 20180508
  Receipt Date: 20180508
  Transmission Date: 20180711
  Serious: Yes (Hospitalization)
  Sender: FDA-Public Use
  Company Number: CA-BAYER-2018-085613

PATIENT
  Sex: Male

DRUGS (4)
  1. CLARITIN [Suspect]
     Active Substance: LORATADINE
     Indication: HYPERSENSITIVITY
     Dosage: UNK
     Dates: start: 20180502
  2. ALLERGENS, MOULD + YEAST SPORE [Concomitant]
     Indication: IMMUNE TOLERANCE INDUCTION
     Dosage: UNK
     Dates: start: 20180502
  3. CLARITIN KIDS 0.1 % [Suspect]
     Active Substance: LORATADINE
     Dosage: UNK
  4. CLARITIN KIDS 0.1 % [Suspect]
     Active Substance: LORATADINE
     Dosage: UNK

REACTIONS (7)
  - Swollen tongue [None]
  - Headache [None]
  - Hypersensitivity [None]
  - Fatigue [None]
  - Dyspnoea [None]
  - Diarrhoea [None]
  - Hypersensitivity [None]

NARRATIVE: CASE EVENT DATE: 20180502
